FAERS Safety Report 6051968-1 (Version None)
Quarter: 2009Q1

REPORT INFORMATION
  Report Type: 
  Country: None (occurrence: None)
  Receive Date: 20090126
  Receipt Date: 20090120
  Transmission Date: 20090719
  Serious: Yes (Other)
  Sender: FDA-Public Use
  Company Number: DE-ABBOTT-09P-062-0498285-00

PATIENT
  Age: 32 Year
  Sex: Male
  Weight: 103 kg

DRUGS (9)
  1. CLARITHROMYCIN [Suspect]
     Indication: LOWER RESPIRATORY TRACT INFECTION
  2. QUETIAPINE FUMARATE [Interacting]
     Indication: PSYCHOTIC BEHAVIOUR
  3. QUETIAPINE FUMARATE [Interacting]
  4. SULTAMICILLIN [Concomitant]
     Indication: LOWER RESPIRATORY TRACT INFECTION
     Dosage: NOT REPORTED
     Route: 048
  5. VALPROIC ACID [Concomitant]
     Indication: DRUG USE FOR UNKNOWN INDICATION
  6. OMEPRAZOLE [Concomitant]
     Indication: DRUG USE FOR UNKNOWN INDICATION
  7. METFORMIN HCL [Concomitant]
     Indication: DRUG USE FOR UNKNOWN INDICATION
  8. GLIBENCLAMIDE [Concomitant]
     Indication: DRUG USE FOR UNKNOWN INDICATION
  9. EZETIMIBE [Concomitant]
     Indication: DRUG USE FOR UNKNOWN INDICATION

REACTIONS (3)
  - ALTERED STATE OF CONSCIOUSNESS [None]
  - DRUG INTERACTION [None]
  - RESPIRATORY FAILURE [None]
